FAERS Safety Report 13401568 (Version 2)
Quarter: 2018Q2

REPORT INFORMATION
  Report Type: Spontaneous
  Country: ES (occurrence: ES)
  Receive Date: 20170404
  Receipt Date: 20180525
  Transmission Date: 20180711
  Serious: Yes (Other)
  Sender: FDA-Public Use
  Company Number: ES-JNJFOC-20170402238

PATIENT
  Age: 74 Year
  Sex: Female

DRUGS (8)
  1. MEZAVANT [Concomitant]
     Active Substance: MESALAMINE
     Indication: ARTHRITIS
     Route: 065
  2. ATORVASTATIN [Concomitant]
     Active Substance: ATORVASTATIN
     Indication: DYSLIPIDAEMIA
     Route: 065
  3. URBASON [Concomitant]
     Active Substance: METHYLPREDNISOLONE
     Indication: COLITIS ULCERATIVE
     Route: 065
  4. ABRION [Concomitant]
     Route: 065
  5. REMICADE [Suspect]
     Active Substance: INFLIXIMAB
     Indication: COLITIS ULCERATIVE
     Dosage: FREQUENCY/DOSING INTERVAL: 8
     Route: 042
     Dates: start: 200505, end: 201511
  6. REMICADE [Suspect]
     Active Substance: INFLIXIMAB
     Indication: ARTHRITIS
     Dosage: FREQUENCY/DOSING INTERVAL: 8
     Route: 042
     Dates: start: 200505, end: 201511
  7. VALSARTAN. [Concomitant]
     Active Substance: VALSARTAN
     Indication: HYPERTENSION
     Route: 065
  8. MEZAVANT [Concomitant]
     Active Substance: MESALAMINE
     Indication: COLITIS ULCERATIVE
     Route: 065

REACTIONS (1)
  - Malignant melanoma in situ [Recovered/Resolved]

NARRATIVE: CASE EVENT DATE: 20150108
